FAERS Safety Report 21562182 (Version 1)
Quarter: 2022Q4

REPORT INFORMATION
  Report Type: Spontaneous
  Country: US (occurrence: None)
  Receive Date: 20221105
  Receipt Date: 20221105
  Transmission Date: 20230113
  Serious: Yes (Hospitalization)
  Sender: FDA-Public Use
  Company Number: None

PATIENT
  Age: 38 Year
  Sex: Male
  Weight: 64.3 kg

DRUGS (2)
  1. FLUOROURACIL [Suspect]
     Active Substance: FLUOROURACIL
     Dates: end: 20221006
  2. CISPLATIN [Suspect]
     Active Substance: CISPLATIN
     Dates: end: 20221006

REACTIONS (2)
  - Nasal congestion [None]
  - Neutrophil count decreased [None]

NARRATIVE: CASE EVENT DATE: 20221027
